FAERS Safety Report 8276742-7 (Version None)
Quarter: 2012Q2

REPORT INFORMATION
  Report Type: 
  Country: None (occurrence: None)
  Receive Date: 20120412
  Receipt Date: 20120330
  Transmission Date: 20120825
  Serious: Yes (Hospitalization)
  Sender: FDA-Public Use
  Company Number: JP-PFIZER INC-2012088173

PATIENT
  Age: 90 Year
  Sex: Female
  Weight: 50 kg

DRUGS (8)
  1. LAC B [Concomitant]
     Indication: CONSTIPATION
     Dosage: UNK
  2. ATORVASTATIN CALCIUM [Suspect]
     Indication: HYPERCHOLESTEROLAEMIA
     Dosage: 5 MG, 1X/DAY
     Route: 048
     Dates: start: 20110513
  3. URSO 250 [Concomitant]
     Indication: CHOLELITHIASIS
     Dosage: UNK
     Route: 048
  4. MAGNESIUM OXIDE [Concomitant]
     Indication: CONSTIPATION
     Dosage: UNK
     Route: 048
     Dates: start: 20100401, end: 20111117
  5. BISOPROLOL FUMARATE [Suspect]
     Indication: SUPRAVENTRICULAR TACHYCARDIA
     Dosage: 1.25 MG, UNK
     Route: 048
     Dates: start: 20100601, end: 20111203
  6. GLUCOBAY [Concomitant]
     Indication: DIABETES MELLITUS
     Dosage: UNK
     Route: 048
     Dates: start: 20100401, end: 20111117
  7. LANSOPRAZOLE [Concomitant]
     Indication: GASTROOESOPHAGEAL REFLUX DISEASE
     Dosage: UNK
  8. AMARYL [Concomitant]
     Indication: DIABETES MELLITUS
     Dosage: UNK
     Route: 048
     Dates: start: 20090724, end: 20111117

REACTIONS (1)
  - DIABETES MELLITUS [None]
